FAERS Safety Report 9114010 (Version 1)
Quarter: 2013Q1

REPORT INFORMATION
  Report Type: Report from Study
  Country: US (occurrence: US)
  Receive Date: 20130129
  Receipt Date: 20130129
  Transmission Date: 20140127
  Serious: No
  Sender: FDA-Public Use
  Company Number: US-ABBOTT-12P-163-0941731-00

PATIENT
  Age: 73 None
  Sex: Male
  Weight: 127.12 kg

DRUGS (9)
  1. HUMIRA 40 MG/0.8 ML PEN [Suspect]
     Indication: RHEUMATOID ARTHRITIS
     Dates: start: 2008
  2. HUMIRA 40 MG/0.8 ML PEN [Suspect]
     Indication: PSORIATIC ARTHROPATHY
  3. AZATHIOPRINE [Concomitant]
     Indication: PSORIATIC ARTHROPATHY
  4. LEXAPRO [Concomitant]
     Indication: DEPRESSION
  5. ACIPHEX [Concomitant]
     Indication: ABDOMINAL PAIN UPPER
  6. MORPHINE SULFATE [Concomitant]
     Indication: PAIN
  7. ZOLOFT [Concomitant]
     Indication: DEPRESSION
  8. TRAZODONE [Concomitant]
     Indication: DEPRESSION
  9. LISINOPRIL HCTZ [Concomitant]
     Indication: HYPERTENSION

REACTIONS (3)
  - Muscle spasms [Not Recovered/Not Resolved]
  - Bursitis [Not Recovered/Not Resolved]
  - Bursitis [Not Recovered/Not Resolved]
